FAERS Safety Report 6954276-7 (Version None)
Quarter: 2010Q3

REPORT INFORMATION
  Report Type: 
  Country: None (occurrence: None)
  Receive Date: 20100829
  Receipt Date: 20100720
  Transmission Date: 20110219
  Serious: No
  Sender: FDA-Public Use
  Company Number: US-ABBOTT-10P-163-0657613-00

PATIENT
  Age: 56 Year
  Sex: Male
  Weight: 113.5 kg

DRUGS (9)
  1. NIASPAN [Suspect]
     Indication: HIGH DENSITY LIPOPROTEIN DECREASED
     Dosage: AT HOUR OF SLEEP
     Route: 048
     Dates: start: 20100501
  2. NIASPAN [Suspect]
     Dosage: AT HOUR OF SLEEP
     Route: 048
     Dates: start: 20100401, end: 20100501
  3. ASPIRIN [Concomitant]
     Indication: PRODUCT USED FOR UNKNOWN INDICATION
     Dosage: AT HOUR OF SLEEP 30 MIN PRIOR TO NIASPAN
     Route: 048
     Dates: start: 20100401
  4. CRESTOR [Concomitant]
     Indication: ARTERIOSCLEROSIS
     Dosage: AT HOUR OF SLEEP
     Route: 048
     Dates: start: 20100401
  5. BYASTOLIC [Concomitant]
     Indication: HYPERTENSION
     Route: 048
  6. HYZAAR [Concomitant]
     Indication: PRODUCT USED FOR UNKNOWN INDICATION
     Dosage: IN MORNING
     Route: 048
  7. FELODIPINE [Concomitant]
     Indication: PRODUCT USED FOR UNKNOWN INDICATION
     Dosage: IN MORNING
     Route: 048
  8. PHENTERMINE [Concomitant]
     Indication: INCREASED APPETITE
     Dosage: IN MORNING
     Route: 048
  9. LASIX [Concomitant]
     Indication: OEDEMA PERIPHERAL
     Route: 048

REACTIONS (1)
  - FLUSHING [None]
